FAERS Safety Report 13717041 (Version 4)
Quarter: 2017Q4

REPORT INFORMATION
  Report Type: Report from Study
  Country: ES (occurrence: ES)
  Receive Date: 20170705
  Receipt Date: 20171114
  Transmission Date: 20180320
  Serious: Yes (Other)
  Sender: FDA-Public Use
  Company Number: ES-AMGEN-ESPSL2017087569

PATIENT
  Age: 39 Year
  Sex: Male

DRUGS (2)
  1. ASPIRIN. [Concomitant]
     Active Substance: ASPIRIN
     Dosage: OCCASIONALLY
  2. REPATHA [Suspect]
     Active Substance: EVOLOCUMAB
     Indication: TYPE IIA HYPERLIPIDAEMIA
     Dosage: 140 MG, Q2WK
     Route: 065
     Dates: start: 20170223

REACTIONS (7)
  - Dizziness [Not Recovered/Not Resolved]
  - Blindness transient [Not Recovered/Not Resolved]
  - Back pain [Recovering/Resolving]
  - Blood pressure decreased [Unknown]
  - Vertigo [Not Recovered/Not Resolved]
  - Memory impairment [Recovering/Resolving]
  - Nasopharyngitis [Recovering/Resolving]

NARRATIVE: CASE EVENT DATE: 2017
